FAERS Safety Report 21258479 (Version 1)
Quarter: 2022Q3

REPORT INFORMATION
  Report Type: Other
  Country: CA (occurrence: CA)
  Receive Date: 20220826
  Receipt Date: 20220826
  Transmission Date: 20221027
  Serious: Yes (Other)
  Sender: FDA-Public Use
  Company Number: CA-ASTELLAS-2022US030147

PATIENT
  Age: 65 Year
  Sex: Female

DRUGS (1)
  1. MYRBETRIQ [Suspect]
     Active Substance: MIRABEGRON
     Indication: Micturition urgency
     Dosage: UNK UNK, UNKNOWN FREQ. (EXTENDED RELEASE)
     Route: 065

REACTIONS (2)
  - Mucosal dryness [Unknown]
  - Dry mouth [Unknown]
